FAERS Safety Report 9468305 (Version 2)
Quarter: 2013Q3

REPORT INFORMATION
  Report Type: Report from Study
  Country: CO (occurrence: CO)
  Receive Date: 20130821
  Receipt Date: 20130828
  Transmission Date: 20140515
  Serious: Yes (Hospitalization)
  Sender: FDA-Public Use
  Company Number: CO-ROCHE-1264443

PATIENT
  Age: 66 Year
  Sex: Male

DRUGS (1)
  1. RANIBIZUMAB [Suspect]
     Indication: MACULAR DEGENERATION
     Dosage: MOST RECENT DOSE ON 20/AUG/2013
     Route: 050
     Dates: start: 20130709

REACTIONS (1)
  - Pneumonia [Recovered/Resolved]
